FAERS Safety Report 12679975 (Version 2)
Quarter: 2017Q1

REPORT INFORMATION
  Report Type: Spontaneous
  Country: US (occurrence: US)
  Receive Date: 20160824
  Receipt Date: 20170203
  Transmission Date: 20170428
  Serious: Yes (Death, Hospitalization, Other)
  Sender: FDA-Public Use
  Company Number: US-009507513-1608USA011417

PATIENT
  Sex: Male
  Weight: 79.37 kg

DRUGS (5)
  1. METFORMIN [Concomitant]
     Active Substance: METFORMIN HYDROCHLORIDE
     Indication: TYPE 2 DIABETES MELLITUS
     Dosage: UNK, UNKNOWN
     Route: 065
  2. BYDUREON [Concomitant]
     Active Substance: EXENATIDE
     Indication: TYPE 2 DIABETES MELLITUS
     Dosage: 2 MG, QW
     Route: 048
  3. GLIPIZIDE. [Concomitant]
     Active Substance: GLIPIZIDE
     Indication: TYPE 2 DIABETES MELLITUS
     Dosage: 10 MG, QD
     Route: 048
  4. JANUMET [Suspect]
     Active Substance: METFORMIN HYDROCHLORIDE\SITAGLIPTIN PHOSPHATE
     Indication: TYPE 2 DIABETES MELLITUS
     Dosage: 50/500 MG, QW
     Route: 065
     Dates: start: 201206, end: 201305
  5. INSULIN [Concomitant]
     Active Substance: INSULIN NOS
     Indication: TYPE 2 DIABETES MELLITUS

REACTIONS (33)
  - Pancreatic carcinoma metastatic [Not Recovered/Not Resolved]
  - Renal cyst [Unknown]
  - Carotid artery stenosis [Unknown]
  - Cough [Unknown]
  - Somnolence [Unknown]
  - Polyuria [Unknown]
  - Splenomegaly [Unknown]
  - Polyp [Unknown]
  - Carotid endarterectomy [Unknown]
  - Arthralgia [Unknown]
  - Fatigue [Unknown]
  - Erectile dysfunction [Unknown]
  - Hiatus hernia [Unknown]
  - Urinary tract infection [Unknown]
  - Pulmonary function test decreased [Unknown]
  - Neutropenia [Unknown]
  - Carotid bruit [Unknown]
  - Gastrooesophageal reflux disease [Unknown]
  - Retinal artery embolism [Unknown]
  - Diabetes mellitus inadequate control [Unknown]
  - Anaemia [Unknown]
  - Sepsis [Unknown]
  - Insomnia [Unknown]
  - Pneumonia [Unknown]
  - Death [Fatal]
  - Hypoaesthesia [Unknown]
  - Klebsiella infection [Unknown]
  - Neck pain [Unknown]
  - Essential hypertension [Unknown]
  - Inappropriate schedule of drug administration [Unknown]
  - Haemangioma of bone [Unknown]
  - Pancytopenia [Recovered/Resolved]
  - Hypercholesterolaemia [Unknown]

NARRATIVE: CASE EVENT DATE: 201206
